FAERS Safety Report 8392572-X (Version None)
Quarter: 2012Q2

REPORT INFORMATION
  Report Type: 
  Country: None (occurrence: None)
  Receive Date: 20120529
  Receipt Date: 20120518
  Transmission Date: 20120825
  Serious: Yes (Other)
  Sender: FDA-Public Use
  Company Number: US-ASTRAZENECA-2011SE70383

PATIENT
  Age: 63 Year
  Sex: Male
  Weight: 165.1 kg

DRUGS (7)
  1. METFORMIN HCL [Concomitant]
     Indication: DIABETES MELLITUS
     Dosage: 500 THREE TIMES A DAY
     Route: 048
  2. TOPROL-XL [Suspect]
     Indication: HYPERTENSION
     Route: 048
     Dates: start: 20111018
  3. CELEBREX [Concomitant]
     Indication: OSTEOARTHRITIS
     Route: 048
  4. OMEPRAZOLE [Concomitant]
  5. NEXIUM [Suspect]
     Indication: GASTROOESOPHAGEAL REFLUX DISEASE
     Route: 048
     Dates: start: 20110719
  6. AMARYL [Concomitant]
     Indication: DIABETES MELLITUS
     Route: 048
  7. LOPRESSOR [Concomitant]

REACTIONS (1)
  - COLON CANCER STAGE II [None]
